FAERS Safety Report 5389660-9 (Version None)
Quarter: 2007Q3

REPORT INFORMATION
  Report Type: 
  Country: None (occurrence: None)
  Receive Date: 20070717
  Receipt Date: 20070706
  Transmission Date: 20080115
  Serious: Yes (Life-Threatening, Hospitalization)
  Sender: FDA-Public Use
  Company Number: AU-SHR-AU-2007-025102

PATIENT

DRUGS (1)
  1. BETASERON [Suspect]
     Dosage: 250 A?G, EVERY 2D
     Route: 058
     Dates: start: 20061206

REACTIONS (2)
  - CHEST PAIN [None]
  - CORONARY ARTERY DISEASE [None]
